FAERS Safety Report 13890949 (Version 1)
Quarter: 2017Q3

REPORT INFORMATION
  Report Type: Spontaneous
  Country: US (occurrence: US)
  Receive Date: 20170822
  Receipt Date: 20170822
  Transmission Date: 20171127
  Serious: No
  Sender: FDA-Public Use
  Company Number: US-AMGEN-USASP2017124616

PATIENT
  Age: 49 Year
  Sex: Female

DRUGS (1)
  1. ENBREL [Suspect]
     Active Substance: ETANERCEPT
     Indication: RHEUMATOID ARTHRITIS
     Dosage: UNK, QWK
     Route: 065
     Dates: start: 201707

REACTIONS (5)
  - Injection site inflammation [Unknown]
  - Injection site swelling [Unknown]
  - Injection site erythema [Unknown]
  - Hypersensitivity [Unknown]
  - Injection site warmth [Unknown]

NARRATIVE: CASE EVENT DATE: 2017
